FAERS Safety Report 9205951 (Version 2)
Quarter: 2013Q2

REPORT INFORMATION
  Report Type: Spontaneous
  Country: US (occurrence: US)
  Receive Date: 20130403
  Receipt Date: 20130528
  Transmission Date: 20140414
  Serious: Yes (Other)
  Sender: FDA-Public Use
  Company Number: US-JNJFOC-20130400817

PATIENT
  Sex: Female
  Weight: 72.58 kg

DRUGS (2)
  1. STELARA [Suspect]
     Indication: PSORIASIS
     Route: 058
     Dates: start: 2012, end: 201208
  2. DOXYCYCLINE [Suspect]
     Indication: ACNE
     Dosage: WITH MEALS
     Route: 065
     Dates: start: 201208, end: 201209

REACTIONS (2)
  - Benign intracranial hypertension [Recovering/Resolving]
  - Treatment noncompliance [Unknown]
